FAERS Safety Report 8777245 (Version 1)
Quarter: 2012Q4

REPORT INFORMATION
  Report Type: 
  Country: ES (occurrence: ES)
  Receive Date: 20120910
  Receipt Date: 20120910
  Transmission Date: 20130627
  Serious: Yes (Hospitalization, Other)
  Sender: FDA-Public Use
  Company Number: ES-ABBOTT-12P-144-0973052-00

PATIENT
  Age: 40 Year
  Sex: Male

DRUGS (6)
  1. VALPROIC ACID [Suspect]
     Indication: EPILEPSY
  2. VALPROIC ACID [Suspect]
     Indication: DRUG RESISTANCE
  3. FLUVOXAMINE MALEATE [Suspect]
     Indication: ANXIETY DISORDER
  4. FLUVOXAMINE MALEATE [Suspect]
     Dosage: At night
  5. CARBAMAZEPINE [Concomitant]
     Indication: EPILEPSY
     Dosage: 400mg at breakfast and dinner, 200 mg at lunch
  6. CARBAMAZEPINE [Concomitant]
     Indication: DRUG RESISTANCE

REACTIONS (3)
  - Pancreatitis acute [Recovered/Resolved]
  - Inappropriate antidiuretic hormone secretion [Recovered/Resolved]
  - Incorrect dose administered [Unknown]
